FAERS Safety Report 18109430 (Version 2)
Quarter: 2020Q3

REPORT INFORMATION
  Report Type: Spontaneous
  Country: US (occurrence: US)
  Receive Date: 20200804
  Receipt Date: 20200805
  Transmission Date: 20201103
  Serious: Yes (Other)
  Sender: FDA-Public Use
  Company Number: US-PFIZER INC-2018419799

PATIENT
  Age: 73 Year
  Sex: Male

DRUGS (1)
  1. EFFEXOR XR [Suspect]
     Active Substance: VENLAFAXINE HYDROCHLORIDE
     Indication: MAJOR DEPRESSION
     Dosage: 150 MG, 2X/DAY
     Route: 048

REACTIONS (4)
  - Stress [Unknown]
  - Prescribed overdose [Unknown]
  - COVID-19 [Unknown]
  - Feeling abnormal [Unknown]
